FAERS Safety Report 6404636-8 (Version None)
Quarter: 2009Q4

REPORT INFORMATION
  Report Type: 
  Country: None (occurrence: None)
  Receive Date: 20091016
  Receipt Date: 20091009
  Transmission Date: 20100525
  Serious: No
  Sender: FDA-Public Use
  Company Number: US-BAYER-200915422BCC

PATIENT
  Age: 42 Year
  Sex: Female

DRUGS (8)
  1. ALEVE [Suspect]
     Indication: DRUG USE FOR UNKNOWN INDICATION
     Route: 065
  2. ASPIRIN [Suspect]
     Indication: DRUG USE FOR UNKNOWN INDICATION
     Route: 065
  3. BETASERON [Concomitant]
     Indication: MULTIPLE SCLEROSIS RELAPSE
  4. ATIVAN [Concomitant]
     Indication: PSYCHOTIC DISORDER
  5. XANAX [Concomitant]
     Indication: PSYCHOTIC DISORDER
  6. CYMBALTA [Concomitant]
  7. TOPAMAX [Concomitant]
  8. ADARAL [Concomitant]
     Indication: FATIGUE

REACTIONS (1)
  - ASTHMA [None]
